FAERS Safety Report 7933771 (Version 2)
Quarter: 2013Q3

REPORT INFORMATION
  Report Type: Spontaneous
  Country: US (occurrence: US)
  Receive Date: 20110506
  Receipt Date: 20130809
  Transmission Date: 20140515
  Serious: Yes (Hospitalization, Other)
  Sender: FDA-Public Use
  Company Number: US-ROCHE-749837

PATIENT
  Sex: Male
  Weight: 61.2 kg

DRUGS (2)
  1. ACCUTANE [Suspect]
     Indication: ACNE
     Dosage: THERAPY FOR FOUR MONTHS.
     Route: 065
     Dates: start: 1983, end: 1984
  2. ACCUTANE [Suspect]
     Route: 065
     Dates: start: 198401, end: 198412

REACTIONS (6)
  - Colectomy [Unknown]
  - Crohn^s disease [Unknown]
  - Colitis ulcerative [Unknown]
  - Gastrointestinal injury [Unknown]
  - Depression [Unknown]
  - Irritable bowel syndrome [Unknown]
